FAERS Safety Report 8507612-4 (Version None)
Quarter: 2012Q3

REPORT INFORMATION
  Report Type: 
  Country: None (occurrence: None)
  Receive Date: 20120713
  Receipt Date: 20120709
  Transmission Date: 20120928
  Serious: No
  Sender: FDA-Public Use
  Company Number: US-BIOGENIDEC-2012BI013564

PATIENT
  Sex: Female

DRUGS (2)
  1. PREDNISONE [Concomitant]
     Indication: PREMEDICATION
  2. TYSABRI [Suspect]
     Indication: MULTIPLE SCLEROSIS
     Route: 042
     Dates: start: 20120410

REACTIONS (8)
  - HOT FLUSH [None]
  - HEADACHE [None]
  - HYPERSENSITIVITY [None]
  - SOMNOLENCE [None]
  - BALANCE DISORDER [None]
  - FATIGUE [None]
  - HYPOAESTHESIA [None]
  - DYSPNOEA [None]
